FAERS Safety Report 23330154 (Version 1)
Quarter: 2023Q4

REPORT INFORMATION
  Report Type: Report from Study
  Country: US (occurrence: US)
  Receive Date: 20231222
  Receipt Date: 20231222
  Transmission Date: 20240109
  Serious: Yes (Hospitalization)
  Sender: FDA-Public Use
  Company Number: US-TAKEDA-2023TUS066565

PATIENT
  Sex: Male

DRUGS (2)
  1. IXAZOMIB [Suspect]
     Active Substance: IXAZOMIB
     Indication: Immunodeficiency
     Dosage: 4 MILLIGRAM
     Route: 048
     Dates: start: 202209
  2. IXAZOMIB [Suspect]
     Active Substance: IXAZOMIB
     Dosage: 4 MILLIGRAM
     Route: 048

REACTIONS (3)
  - Hospitalisation [Unknown]
  - Diarrhoea [Not Recovered/Not Resolved]
  - Off label use [Unknown]
